FAERS Safety Report 6458845-2 (Version None)
Quarter: 2009Q4

REPORT INFORMATION
  Report Type: 
  Country: None (occurrence: None)
  Receive Date: 20091127
  Receipt Date: 20091105
  Transmission Date: 20100525
  Serious: Yes (Other)
  Sender: FDA-Public Use
  Company Number: VE-BAYER-200923853LA

PATIENT
  Age: 28 Year
  Sex: Female

DRUGS (1)
  1. YASMIN [Suspect]
     Indication: CONTRACEPTION
     Route: 048
     Dates: start: 20050629, end: 20090629

REACTIONS (2)
  - ABORTION SPONTANEOUS [None]
  - PREGNANCY ON ORAL CONTRACEPTIVE [None]
